FAERS Safety Report 11013930 (Version 2)
Quarter: 2015Q2

REPORT INFORMATION
  Report Type: Spontaneous
  Country: US (occurrence: US)
  Receive Date: 20150412
  Receipt Date: 20150525
  Transmission Date: 20150821
  Serious: No
  Sender: FDA-Public Use
  Company Number: US-JNJFOC-20130816810

PATIENT
  Age: 42 Year
  Sex: Female
  Weight: 56.7 kg

DRUGS (1)
  1. ELMIRON [Suspect]
     Active Substance: PENTOSAN POLYSULFATE SODIUM
     Indication: CYSTITIS INTERSTITIAL
     Dosage: FOR 4 DAYS
     Route: 048
     Dates: start: 201306

REACTIONS (3)
  - Urinary tract infection [Recovered/Resolved]
  - Incorrect dose administered [Recovered/Resolved]
  - Renal pain [Not Recovered/Not Resolved]

NARRATIVE: CASE EVENT DATE: 201306
